FAERS Safety Report 8879629 (Version 1)
Quarter: 2012Q4

REPORT INFORMATION
  Report Type: 
  Country: CA (occurrence: CA)
  Receive Date: 20121031
  Receipt Date: 20121031
  Transmission Date: 20130627
  Serious: Yes (Other)
  Sender: FDA-Public Use
  Company Number: CA-GLAXOSMITHKLINE-A0954520A

PATIENT
  Age: 55 Year
  Sex: Female

DRUGS (9)
  1. TYKERB [Suspect]
     Indication: BREAST CANCER METASTATIC
     Dosage: 1250MG Per day
     Route: 048
     Dates: start: 20111121, end: 20121011
  2. POTASSIUM [Concomitant]
     Dosage: 600MG Per day
     Route: 065
  3. CYMBALTA [Concomitant]
     Dosage: 60MG Per day
     Route: 065
  4. PANTOLOC [Concomitant]
     Route: 065
  5. GABAPENTIN [Concomitant]
     Dosage: 300MG Three times per day
     Route: 065
  6. METHADONE [Concomitant]
     Dosage: 2.5MG Four times per day
     Route: 065
  7. BENADRYL [Concomitant]
     Dosage: 15ML As required
     Route: 065
  8. LAXATIVE [Concomitant]
     Route: 065
  9. XELODA [Concomitant]
     Dosage: 500MG See dosage text
     Route: 065

REACTIONS (2)
  - Breast cancer metastatic [Not Recovered/Not Resolved]
  - Diarrhoea [Recovered/Resolved]
